FAERS Safety Report 16710072 (Version 1)
Quarter: 2019Q4

REPORT INFORMATION
  Report Type: Spontaneous
  Country: US (occurrence: US)
  Receive Date: 20190815
  Receipt Date: 20190815
  Transmission Date: 20200122
  Serious: Yes (Hospitalization, Other)
  Sender: FDA-Public Use
  Company Number: None

PATIENT
  Age: 58 Year
  Sex: Female
  Weight: 80.6 kg

DRUGS (16)
  1. LIPITOR [Concomitant]
     Active Substance: ATORVASTATIN CALCIUM
  2. PREVACID [Concomitant]
     Active Substance: LANSOPRAZOLE
  3. GABAPENTIN. [Concomitant]
     Active Substance: GABAPENTIN
  4. TRULICITY [Concomitant]
     Active Substance: DULAGLUTIDE
  5. ZESTRIL [Concomitant]
     Active Substance: LISINOPRIL
  6. SENNA [Concomitant]
     Active Substance: SENNA LEAF\SENNOSIDES\SENNOSIDES A AND B
  7. MVI [Concomitant]
     Active Substance: VITAMINS
  8. JARDIANCE [Suspect]
     Active Substance: EMPAGLIFLOZIN
     Indication: TYPE 2 DIABETES MELLITUS
     Route: 048
     Dates: start: 20190708, end: 20190813
  9. SYNTHROID [Concomitant]
     Active Substance: LEVOTHYROXINE SODIUM
  10. VITAMIN C [Concomitant]
     Active Substance: ASCORBIC ACID
  11. DEMADEX [Concomitant]
     Active Substance: TORSEMIDE
  12. METFORMIN [Concomitant]
     Active Substance: METFORMIN HYDROCHLORIDE
  13. DITROPAN [Concomitant]
     Active Substance: OXYBUTYNIN CHLORIDE
  14. BIOTIN [Concomitant]
     Active Substance: BIOTIN
  15. ESTRACE [Concomitant]
     Active Substance: ESTRADIOL
  16. FLUCONAZOLE. [Concomitant]
     Active Substance: FLUCONAZOLE

REACTIONS (7)
  - Vomiting [None]
  - Dizziness [None]
  - Malaise [None]
  - Nausea [None]
  - Acute kidney injury [None]
  - Acidosis [None]
  - Fatigue [None]

NARRATIVE: CASE EVENT DATE: 20190813
